FAERS Safety Report 8554587-8 (Version None)
Quarter: 2012Q3

REPORT INFORMATION
  Report Type: 
  Country: None (occurrence: None)
  Receive Date: 20120731
  Receipt Date: 20120726
  Transmission Date: 20120928
  Serious: No
  Sender: FDA-Public Use
  Company Number: US-PFIZER INC-2012182350

PATIENT
  Sex: Female
  Weight: 86.168 kg

DRUGS (4)
  1. LEVOXYL [Suspect]
     Indication: HYPOTHYROIDISM
     Dosage: 25 UG, 1X/DAY
     Dates: start: 20110901
  2. LEVOXYL [Interacting]
     Dosage: 25 UG, 1X/DAY
     Dates: end: 20120501
  3. LEVOXYL [Interacting]
     Dosage: 75 UG, 1X/DAY
     Dates: start: 20120726
  4. LEVOXYL [Interacting]
     Dosage: 50 UG, 1X/DAY
     Dates: start: 20120501, end: 20120726

REACTIONS (2)
  - DRUG INEFFECTIVE [None]
  - FOOD INTERACTION [None]
